FAERS Safety Report 6995974-9 (Version None)
Quarter: 2010Q3

REPORT INFORMATION
  Report Type: 
  Country: None (occurrence: None)
  Receive Date: 20100918
  Receipt Date: 20081201
  Transmission Date: 20110219
  Serious: No
  Sender: FDA-Public Use
  Company Number: US-WYE-H07051508

PATIENT
  Sex: Female
  Weight: 52.21 kg

DRUGS (2)
  1. EFFEXOR XR [Suspect]
     Indication: DEPRESSION
     Route: 048
     Dates: start: 20080313, end: 20080316
  2. EFFEXOR XR [Suspect]
     Indication: ANXIETY

REACTIONS (7)
  - DIZZINESS [None]
  - DYSSTASIA [None]
  - FATIGUE [None]
  - HEADACHE [None]
  - MYDRIASIS [None]
  - NAUSEA [None]
  - PHOTOPHOBIA [None]
